FAERS Safety Report 4348510-X (Version None)
Quarter: 2004Q2

REPORT INFORMATION
  Report Type: 
  Country: None (occurrence: None)
  Receive Date: 20040422
  Receipt Date: 20040405
  Transmission Date: 20050107
  Serious: Yes (Other)
  Sender: FDA-Public Use
  Company Number: DE_040413348

PATIENT
  Age: 40 Year
  Sex: Male

DRUGS (2)
  1. CIALIS [Suspect]
     Indication: ERECTILE DYSFUNCTION
     Dosage: 10 MG AS NEEDED
     Dates: start: 20030701, end: 20030801
  2. CIALIS [Suspect]
     Indication: PREMATURE EJACULATION
     Dosage: 10 MG AS NEEDED
     Dates: start: 20030701, end: 20030801

REACTIONS (2)
  - CARDIAC DISORDER [None]
  - DIZZINESS [None]
